FAERS Safety Report 25803961 (Version 1)
Quarter: 2025Q3

REPORT INFORMATION
  Report Type: Spontaneous
  Country: US (occurrence: US)
  Receive Date: 20250915
  Receipt Date: 20250915
  Transmission Date: 20251020
  Serious: Yes (Other)
  Sender: NORDIC PHARMA
  Company Number: US-NORDIC PHARMA, INC-2025US004827

PATIENT

DRUGS (2)
  1. ARSENIC TRIOXIDE [Suspect]
     Active Substance: ARSENIC TRIOXIDE
     Indication: Acute promyelocytic leukaemia
     Dosage: 0.15 MG/KG, DAILY 5 DAYS PER WEEK FOR 4 WEEKS
     Route: 042
  2. TRETINOIN [Suspect]
     Active Substance: TRETINOIN
     Indication: Acute promyelocytic leukaemia
     Dosage: 45 MG/M2, DAILY FOR 2 WEEKS EVERY 4 WEEKS
     Route: 042

REACTIONS (1)
  - Hallucination, visual [Unknown]
